FAERS Safety Report 24200138 (Version 2)
Quarter: 2024Q3

REPORT INFORMATION
  Report Type: Spontaneous
  Country: JP (occurrence: JP)
  Receive Date: 20240812
  Receipt Date: 20240903
  Transmission Date: 20241017
  Serious: No
  Sender: AMGEN
  Company Number: JP-KYOWAKIRIN-2024KK018614

PATIENT
  Age: 88 Year
  Sex: Female

DRUGS (1)
  1. DARBEPOETIN ALFA [Suspect]
     Active Substance: DARBEPOETIN ALFA
     Indication: Product used for unknown indication
     Dosage: 120 MICROGRAM, Q4WK
     Route: 065

REACTIONS (1)
  - Adverse event [Unknown]
